FAERS Safety Report 17746525 (Version 1)
Quarter: 2020Q2

REPORT INFORMATION
  Report Type: Spontaneous
  Country: US (occurrence: US)
  Receive Date: 20200505
  Receipt Date: 20200505
  Transmission Date: 20200714
  Serious: No
  Sender: FDA-Public Use
  Company Number: US-ROCHE-2396785

PATIENT
  Sex: Male

DRUGS (9)
  1. LOSARTAN. [Concomitant]
     Active Substance: LOSARTAN
  2. INCRUSE ELLIPTA [Concomitant]
     Active Substance: UMECLIDINIUM BROMIDE
  3. METOPROLOL SUCCINATE. [Concomitant]
     Active Substance: METOPROLOL SUCCINATE
  4. SAW PALMETTO [SERENOA REPENS] [Concomitant]
  5. ESBRIET [Suspect]
     Active Substance: PIRFENIDONE
     Indication: IDIOPATHIC PULMONARY FIBROSIS
     Route: 048
     Dates: start: 20190410
  6. EZETIMIBE. [Concomitant]
     Active Substance: EZETIMIBE
  7. FISH OIL [Concomitant]
     Active Substance: FISH OIL
  8. ASPIR LOW [Concomitant]
     Active Substance: ASPIRIN
  9. FLUVASTATIN [Concomitant]
     Active Substance: FLUVASTATIN SODIUM

REACTIONS (1)
  - Fatigue [Unknown]
